FAERS Safety Report 8436566-4 (Version None)
Quarter: 2012Q2

REPORT INFORMATION
  Report Type: 
  Country: None (occurrence: None)
  Receive Date: 20120614
  Receipt Date: 20120605
  Transmission Date: 20120825
  Serious: Yes (Life-Threatening, Other)
  Sender: FDA-Public Use
  Company Number: JP-SANOFI-AVENTIS-2012SA040842

PATIENT
  Age: 90 Year
  Sex: Female

DRUGS (4)
  1. ASPIRIN [Concomitant]
     Route: 048
  2. PLAVIX [Suspect]
     Route: 048
     Dates: start: 20120101
  3. PLAVIX [Suspect]
     Route: 048
     Dates: start: 20120101
  4. ASPIRIN [Concomitant]
     Route: 048

REACTIONS (2)
  - GASTROINTESTINAL HAEMORRHAGE [None]
  - LOSS OF CONSCIOUSNESS [None]
